FAERS Safety Report 5378860-X (Version None)
Quarter: 2007Q3

REPORT INFORMATION
  Report Type: 
  Country: None (occurrence: None)
  Receive Date: 20070705
  Receipt Date: 20070626
  Transmission Date: 20080115
  Serious: Yes (Hospitalization, Other)
  Sender: FDA-Public Use
  Company Number: JP-ELI_LILLY_AND_COMPANY-JP200706006173

PATIENT
  Age: 54 Year
  Sex: Male
  Weight: 64.5 kg

DRUGS (3)
  1. GEMZAR [Suspect]
     Indication: BILE DUCT CANCER RECURRENT
     Dosage: 1600 MG, OTHER
     Route: 042
     Dates: start: 20060804
  2. HALCION [Concomitant]
     Indication: INSOMNIA
     Dosage: 0.25 MG, DAILY (1/D)
     Route: 048
  3. MUCOSTA [Concomitant]
     Indication: PROPHYLAXIS
     Dosage: 100 MG, DAILY (1/D)
     Route: 048
     Dates: start: 20060823, end: 20060905

REACTIONS (2)
  - CHOLANGITIS [None]
  - KLEBSIELLA BACTERAEMIA [None]
